FAERS Safety Report 10265256 (Version 1)
Quarter: 2014Q2

REPORT INFORMATION
  Report Type: Spontaneous
  Country: US (occurrence: None)
  Receive Date: 20140625
  Receipt Date: 20140625
  Transmission Date: 20141212
  Serious: Yes (Hospitalization)
  Sender: FDA-Public Use
  Company Number: None

PATIENT
  Age: 87 Year
  Sex: Male
  Weight: 102 kg

DRUGS (1)
  1. METOPROLOL [Suspect]
     Indication: HYPERTENSION
     Route: 048
     Dates: start: 20080922, end: 20140529

REACTIONS (4)
  - Syncope [None]
  - Bradycardia [None]
  - Haemorrhage intracranial [None]
  - Head injury [None]
